FAERS Safety Report 12010157 (Version 1)
Quarter: 2016Q1

REPORT INFORMATION
  Report Type: Spontaneous
  Country: US (occurrence: None)
  Receive Date: 20160204
  Receipt Date: 20160204
  Transmission Date: 20160526
  Serious: Yes (Life-Threatening)
  Sender: FDA-Public Use
  Company Number: None

PATIENT
  Age: 67 Year
  Sex: Female
  Weight: 81.65 kg

DRUGS (10)
  1. CAFFEINE. [Concomitant]
     Active Substance: CAFFEINE
  2. HYDROXYZINE [Concomitant]
     Active Substance: HYDROXYZINE\HYDROXYZINE HYDROCHLORIDE
  3. INTERFERON A [Concomitant]
     Active Substance: INTERFERON ALFA-2A
  4. ECP [Concomitant]
  5. XOLAIR [Suspect]
     Active Substance: OMALIZUMAB
     Indication: CHRONIC SPONTANEOUS URTICARIA
     Dosage: 300 MG ONCE PER MONTH GIVEN INTO/UNDER THE SKIN
  6. GABAPENTIN. [Concomitant]
     Active Substance: GABAPENTIN
  7. WELLBUTRIN [Concomitant]
     Active Substance: BUPROPION HYDROCHLORIDE
  8. VITAMINS [Concomitant]
     Active Substance: VITAMINS
  9. CELEBREX [Concomitant]
     Active Substance: CELECOXIB
  10. PROBOITIC [Concomitant]

REACTIONS (1)
  - T-cell lymphoma stage IV [None]

NARRATIVE: CASE EVENT DATE: 20151214
